FAERS Safety Report 8254868-1 (Version None)
Quarter: 2012Q2

REPORT INFORMATION
  Report Type: 
  Country: None (occurrence: None)
  Receive Date: 20120403
  Receipt Date: 20120329
  Transmission Date: 20120825
  Serious: Yes (Hospitalization)
  Sender: FDA-Public Use
  Company Number: GB-SANOFI-AVENTIS-2012SA022117

PATIENT
  Age: 65 Year
  Sex: Male

DRUGS (3)
  1. PLACEBO [Suspect]
     Route: 065
  2. METFORMIN HCL [Suspect]
     Route: 048
  3. GLIMEPIRIDE [Suspect]
     Route: 048

REACTIONS (1)
  - ANGINA UNSTABLE [None]
